FAERS Safety Report 5336507-2 (Version None)
Quarter: 2007Q2

REPORT INFORMATION
  Report Type: 
  Country: None (occurrence: None)
  Receive Date: 20070524
  Receipt Date: 20070508
  Transmission Date: 20071010
  Serious: Yes (Hospitalization)
  Sender: FDA-Public Use
  Company Number: DSA_29928_2007

PATIENT
  Age: 71 Year
  Sex: Female

DRUGS (7)
  1. RENITEN /00574904/ (RENITEN) 20 MG (NOT SPECIFIED) [Suspect]
     Dosage: (20 MG QD ORAL)
     Route: 048
  2. FRAXIPARINE (FRAXIPARINE) 0.6 ML (NOT SPECIFIED) [Suspect]
     Indication: ANTICOAGULANT THERAPY
     Dosage: (0.6 ML BID, SUBCUTANEOUS
     Route: 058
  3. FRAXIPARINE (FRAXIPARINE) 0.3 ML (NOT SPECIFIED) [Suspect]
     Indication: ANTICOAGULANT THERAPY
     Dosage: (0.3 ML QD SUBCUTANEOUS
     Route: 058
  4. CONTRAST MEDIA (RADIOGRAPHIC CONTRASAT MEDIUM (UNSPECIFIED) [Suspect]
     Indication: ANGIOGRAM
     Dosage: (300 ML 1X)
  5. ASPIRIN [Suspect]
     Indication: PLATELET AGGREGATION INHIBITION
     Dosage: (100 MG QD ORAL)
     Route: 048
  6. MARCOIMAR (MARCOUMAR) (NOT SPECIFIED) [Suspect]
     Indication: ANTICOAGULANT THERAPY
     Dosage: ORAL
     Route: 048
  7. FRAXIFORTE (FRAXIFORTE) (NOT SPECIFIED) [Suspect]
     Indication: ANTICOAGULANT THERAPY

REACTIONS (20)
  - ABDOMINAL PAIN [None]
  - ANURIA [None]
  - ARTERIOGRAM CORONARY ABNORMAL [None]
  - CANDIDA SEPSIS [None]
  - CARDIAC ANEURYSM [None]
  - CARDIAC PROCEDURE COMPLICATION [None]
  - CORONARY ARTERY DISEASE [None]
  - HAEMODIALYSIS [None]
  - MUSCLE HAEMORRHAGE [None]
  - MYOCARDIAL INFARCTION [None]
  - OBSTRUCTION [None]
  - POST PROCEDURAL HAEMORRHAGE [None]
  - RENAL DISORDER [None]
  - RENAL FAILURE ACUTE [None]
  - RENAL TUBULAR NECROSIS [None]
  - RETROPERITONEAL HAEMATOMA [None]
  - RETROPERITONEAL HAEMORRHAGE [None]
  - SHOCK [None]
  - URETERIC OBSTRUCTION [None]
  - UROSEPSIS [None]
